FAERS Safety Report 4987379-7 (Version None)
Quarter: 2006Q2

REPORT INFORMATION
  Report Type: 
  Country: None (occurrence: None)
  Receive Date: 20060501
  Receipt Date: 20060418
  Transmission Date: 20061013
  Serious: Yes (Other)
  Sender: FDA-Public Use
  Company Number: PHEH2006US05115

PATIENT
  Age: 71 Year
  Sex: Female

DRUGS (2)
  1. ALIMTA [Suspect]
     Indication: LUNG CANCER METASTATIC
     Dates: start: 20051201, end: 20060201
  2. ZOMETA [Suspect]
     Indication: LUNG CANCER METASTATIC
     Dosage: UNK, Q MONTH
     Dates: start: 20051201, end: 20060201

REACTIONS (5)
  - BURNING SENSATION [None]
  - MUSCLE TWITCHING [None]
  - NEUROPATHY [None]
  - PARAESTHESIA [None]
  - TREMOR [None]
